FAERS Safety Report 11162899 (Version 1)
Quarter: 2015Q2

REPORT INFORMATION
  Report Type: Spontaneous
  Country: US (occurrence: US)
  Receive Date: 20150604
  Receipt Date: 20150604
  Transmission Date: 20150821
  Serious: No
  Sender: FDA-Public Use
  Company Number: US-SA-2015SA016305

PATIENT
  Age: 51 Year
  Sex: Male

DRUGS (2)
  1. LANTUS SOLOSTAR [Suspect]
     Active Substance: INSULIN GLARGINE
     Indication: DIABETES MELLITUS
     Dosage: DOSE:75 UNIT(S)
     Route: 065
     Dates: start: 2010
  2. SOLOSTAR [Concomitant]
     Active Substance: DEVICE

REACTIONS (5)
  - Injection site pain [Unknown]
  - Blood glucose increased [Unknown]
  - Feeling abnormal [Unknown]
  - Drug ineffective [Unknown]
  - Product odour abnormal [Unknown]

NARRATIVE: CASE EVENT DATE: 20150204
